FAERS Safety Report 5814255-X (Version None)
Quarter: 2008Q3

REPORT INFORMATION
  Report Type: 
  Country: None (occurrence: None)
  Receive Date: 20080717
  Receipt Date: 20080708
  Transmission Date: 20090109
  Serious: Yes (Other)
  Sender: FDA-Public Use
  Company Number: GB-ELI_LILLY_AND_COMPANY-GB200803004787

PATIENT
  Sex: Male
  Weight: 78 kg

DRUGS (3)
  1. HUMALOG [Suspect]
     Dosage: 36 IU, UNK
     Route: 058
     Dates: start: 20080311, end: 20080319
  2. HUMALOG [Suspect]
     Dosage: 24 IU, EACH EVENING
     Route: 058
     Dates: start: 20080311, end: 20080319
  3. NOVOLOG MIX 70/30 [Concomitant]

REACTIONS (1)
  - INJECTION SITE RASH [None]
